FAERS Safety Report 8091213-9 (Version None)
Quarter: 2012Q1

REPORT INFORMATION
  Report Type: 
  Country: None (occurrence: None)
  Receive Date: 20120131
  Receipt Date: 20120123
  Transmission Date: 20120608
  Serious: Yes (Other)
  Sender: FDA-Public Use
  Company Number: US-CELGENEUS-163-21880-10040735

PATIENT
  Sex: Male

DRUGS (10)
  1. LOVASTATIN [Concomitant]
     Dosage: 40 MILLIGRAM
     Route: 048
  2. VALTREX [Concomitant]
     Dosage: 500 MILLIGRAM
     Route: 048
  3. MULTI-VITAMINS [Concomitant]
     Indication: SUPPLEMENTATION THERAPY
     Dosage: 1 TABLET
     Route: 048
  4. METOPROLOL TARTRATE [Concomitant]
     Indication: HYPERTENSION
     Dosage: 25 MILLIGRAM
     Route: 048
  5. REVLIMID [Suspect]
     Dosage: 5 MILLIGRAM
     Route: 048
     Dates: start: 20081114
  6. UROXATROL [Concomitant]
     Dosage: 10 MILLIGRAM
     Route: 048
  7. REVLIMID [Suspect]
     Dosage: 10 MILLIGRAM
     Route: 048
     Dates: start: 20081110
  8. CITRUCEL [Concomitant]
     Indication: CONSTIPATION
     Dosage: 2 CAPSULE
     Route: 048
  9. VIAGRA [Concomitant]
     Dosage: 100 MILLIGRAM
     Route: 048
  10. ASPIRIN [Concomitant]
     Indication: ANTICOAGULANT THERAPY
     Dosage: 81 MILLIGRAM
     Route: 048

REACTIONS (1)
  - PROSTATE CANCER [None]
